FAERS Safety Report 24793742 (Version 1)
Quarter: 2024Q4

REPORT INFORMATION
  Report Type: Spontaneous
  Country: ID (occurrence: ID)
  Receive Date: 20241231
  Receipt Date: 20241231
  Transmission Date: 20250114
  Serious: Yes (Death)
  Sender: ALKEM
  Company Number: ID-ALKEM LABORATORIES LIMITED-ID-ALKEM-2024-12620

PATIENT
  Age: 46 Year
  Sex: Male

DRUGS (1)
  1. TACROLIMUS [Suspect]
     Active Substance: TACROLIMUS
     Indication: Immunosuppressant drug therapy
     Dosage: UNK
     Route: 065

REACTIONS (3)
  - Penicillium infection [Fatal]
  - Candida infection [Unknown]
  - Enterobacter infection [Unknown]
